FAERS Safety Report 6168790-8 (Version None)
Quarter: 2009Q2

REPORT INFORMATION
  Report Type: 
  Country: None (occurrence: None)
  Receive Date: 20090424
  Receipt Date: 20090424
  Transmission Date: 20091009
  Serious: Yes (Hospitalization)
  Sender: FDA-Public Use
  Company Number: None

PATIENT

DRUGS (2)
  1. SIMVASTATIN [Suspect]
     Indication: HYPERLIPIDAEMIA
     Dosage: 80 MG EVERY DAY PO
     Route: 048
     Dates: start: 20081107, end: 20090218
  2. CYCLOSPORINE [Suspect]
     Indication: TRANSPLANT REJECTION
     Dates: start: 20040608

REACTIONS (1)
  - RHABDOMYOLYSIS [None]
